FAERS Safety Report 9370273 (Version 1)
Quarter: 2013Q2

REPORT INFORMATION
  Report Type: Spontaneous
  Country: GB (occurrence: None)
  Receive Date: 20130624
  Receipt Date: 20130624
  Transmission Date: 20140414
  Serious: Yes (Hospitalization)
  Sender: FDA-Public Use
  Company Number: B0899837A

PATIENT
  Age: 62 Year
  Sex: Male

DRUGS (3)
  1. WELLBUTRIN [Suspect]
     Indication: PRODUCT USED FOR UNKNOWN INDICATION
  2. CITALOPRAM [Suspect]
     Indication: PRODUCT USED FOR UNKNOWN INDICATION
  3. TRAMADOL HYDROCHLORIDE [Suspect]
     Indication: MUSCULOSKELETAL PAIN

REACTIONS (10)
  - Serotonin syndrome [None]
  - Anxiety [None]
  - Hyperhidrosis [None]
  - Tremor [None]
  - Tachycardia [None]
  - Clonus [None]
  - Autonomic nervous system imbalance [None]
  - Mental status changes [None]
  - Neuromyopathy [None]
  - Drug interaction [None]
